FAERS Safety Report 6149241-6 (Version None)
Quarter: 2009Q2

REPORT INFORMATION
  Report Type: 
  Country: None (occurrence: None)
  Receive Date: 20090409
  Receipt Date: 20090409
  Transmission Date: 20091009
  Serious: Yes (Hospitalization, Disabling, Other)
  Sender: FDA-Public Use
  Company Number: PHHO2006AU10602

PATIENT
  Sex: Female
  Weight: 66 kg

DRUGS (18)
  1. CGS 20267 T30748+ [Suspect]
     Indication: BREAST CANCER
     Dosage: 2.5 MG, QD
     Route: 048
  2. TAMOXIFEN CITRATE [Suspect]
     Dosage: 20 MG, QD
     Dates: start: 20021111
  3. PARACETAMOL [Concomitant]
     Indication: PAIN
  4. AZOPT [Concomitant]
     Indication: GLAUCOMA
  5. CALTRATE [Concomitant]
  6. DUPHALAC [Concomitant]
     Indication: PROPHYLAXIS
  7. PULMICORT-100 [Concomitant]
     Indication: ASTHMA
  8. TEGRETON CR [Concomitant]
  9. XALATAN [Concomitant]
     Indication: GLAUCOMA
  10. SOMAC [Concomitant]
  11. NU-LAX [Concomitant]
     Indication: PROPHYLAXIS
  12. FOSAMAX [Concomitant]
     Indication: OSTEOPOROSIS
  13. NULYTELY [Concomitant]
     Indication: PROPHYLAXIS
  14. PANTOPRAZOLE [Concomitant]
     Indication: PROPHYLAXIS
  15. OSTELIN [Concomitant]
  16. ALENDRONATE SODIUM [Concomitant]
  17. CLARATYNE [Concomitant]
  18. TEMAZEPAM [Concomitant]

REACTIONS (13)
  - ARTHRALGIA [None]
  - CONSTIPATION [None]
  - FALL [None]
  - FEMORAL NECK FRACTURE [None]
  - FEMUR FRACTURE [None]
  - FRACTURE TREATMENT [None]
  - HUMERUS FRACTURE [None]
  - INTERNAL FIXATION OF FRACTURE [None]
  - MOBILITY DECREASED [None]
  - PAIN IN EXTREMITY [None]
  - PARAESTHESIA [None]
  - PELVIC FRACTURE [None]
  - RIB FRACTURE [None]
